FAERS Safety Report 4551809-5 (Version None)
Quarter: 2005Q1

REPORT INFORMATION
  Report Type: 
  Country: None (occurrence: None)
  Receive Date: 20050111
  Receipt Date: 20041226
  Transmission Date: 20050727
  Serious: Yes (Hospitalization)
  Sender: FDA-Public Use
  Company Number: IL-2004-037235

PATIENT
  Age: 47 Year
  Sex: Male

DRUGS (3)
  1. BETAFERON [Suspect]
     Indication: MULTIPLE SCLEROSIS
     Dosage: 8 MIU EERY 2 D SUBCUTANEOUS
     Route: 058
     Dates: end: 20041201
  2. LOSEC              (OMEPRAZOLE MAGNESIUM) [Concomitant]
  3. VENTOLIN [Concomitant]

REACTIONS (7)
  - ASTHENIA [None]
  - CELLULITIS [None]
  - DYSPNOEA [None]
  - FALL [None]
  - FATIGUE [None]
  - INJECTION SITE ABSCESS [None]
  - PYREXIA [None]
